FAERS Safety Report 8059237-5 (Version None)
Quarter: 2012Q1

REPORT INFORMATION
  Report Type: 
  Country: None (occurrence: None)
  Receive Date: 20120120
  Receipt Date: 20120109
  Transmission Date: 20120608
  Serious: Yes (Hospitalization)
  Sender: FDA-Public Use
  Company Number: US-EISAI INC-E7272-00120-CLI-US

PATIENT
  Sex: Male

DRUGS (13)
  1. ONTAK [Suspect]
     Indication: MALIGNANT MELANOMA STAGE IV
     Route: 041
     Dates: start: 20111213
  2. BLACK WALNUT [Concomitant]
     Indication: SUPPLEMENTATION THERAPY
     Route: 048
     Dates: start: 20111111
  3. PROMETHAZINE [Concomitant]
     Indication: NAUSEA
     Route: 048
     Dates: start: 20111001
  4. LORTAB [Concomitant]
     Indication: PAIN
     Route: 048
     Dates: start: 20111213, end: 20120104
  5. ACETAMINOPHEN [Concomitant]
     Route: 048
     Dates: start: 20111206, end: 20111206
  6. MIRALAX [Concomitant]
     Indication: CONSTIPATION
     Route: 048
     Dates: start: 20111230
  7. CIPROFLOXACIN [Concomitant]
     Indication: URINARY TRACT INFECTION
     Route: 048
     Dates: start: 20120103
  8. LORATADINE [Concomitant]
     Route: 048
     Dates: start: 20111206
  9. PROBIOTICS [Concomitant]
     Indication: SUPPLEMENTATION THERAPY
     Route: 048
     Dates: start: 20111111
  10. OLMESARTAN MEDOXOMIL [Concomitant]
     Indication: HYPERTENSION
     Route: 048
     Dates: start: 20100101
  11. OXYCODONE HCL [Concomitant]
     Indication: PAIN
     Route: 048
     Dates: start: 20120103, end: 20120104
  12. PROCHLORPERAZINE [Concomitant]
     Indication: NAUSEA
     Route: 048
     Dates: start: 20120103
  13. IBUPROFEN [Concomitant]
     Indication: PAIN
     Route: 048
     Dates: start: 20110901, end: 20120104

REACTIONS (1)
  - DEHYDRATION [None]
